FAERS Safety Report 16619253 (Version 3)
Quarter: 2019Q4

REPORT INFORMATION
  Report Type: Spontaneous
  Country: JP (occurrence: JP)
  Receive Date: 20190723
  Receipt Date: 20191220
  Transmission Date: 20200122
  Serious: Yes (Other)
  Sender: FDA-Public Use
  Company Number: PHHY2019JP170031

PATIENT
  Age: 34 Year
  Sex: Male

DRUGS (1)
  1. VOTRIENT [Suspect]
     Active Substance: PAZOPANIB HYDROCHLORIDE
     Indication: SYNOVIAL SARCOMA
     Dosage: UNK
     Route: 065

REACTIONS (8)
  - Neuralgia [Unknown]
  - Haemorrhage [Unknown]
  - Diplegia [Unknown]
  - Back pain [Unknown]
  - Anorectal disorder [Unknown]
  - Metastases to bone [Unknown]
  - Metastases to lung [Unknown]
  - Bladder disorder [Unknown]
